FAERS Safety Report 4491663-3 (Version None)
Quarter: 2004Q4

REPORT INFORMATION
  Report Type: 
  Country: None (occurrence: None)
  Receive Date: 20041103
  Receipt Date: 20041022
  Transmission Date: 20050328
  Serious: Yes (Other)
  Sender: FDA-Public Use
  Company Number: CH-BRISTOL-MYERS SQUIBB COMPANY-12743290

PATIENT
  Age: 36 Year
  Sex: Female

DRUGS (7)
  1. EFAVIRENZ TABS [Suspect]
     Indication: HIV INFECTION
     Dosage: ONCE DAILY
     Route: 048
  2. COMBIVIR [Suspect]
     Indication: HIV INFECTION
     Dosage: 150/300 MG TABLET
     Route: 048
  3. TEGRETOL [Suspect]
     Indication: BIPOLAR DISORDER
     Route: 048
  4. LITHIUM CARBONATE [Concomitant]
  5. PRAZINE [Concomitant]
  6. ZOLOFT [Concomitant]
  7. HUMALOG [Concomitant]

REACTIONS (1)
  - CUSHING'S SYNDROME [None]
